FAERS Safety Report 14753307 (Version 15)
Quarter: 2020Q3

REPORT INFORMATION
  Report Type: Report from Study
  Country: CA (occurrence: CA)
  Receive Date: 20180412
  Receipt Date: 20200831
  Transmission Date: 20201102
  Serious: Yes (Other)
  Sender: FDA-Public Use
  Company Number: PHHY2018CA051472

PATIENT
  Age: 40 Year
  Sex: Male

DRUGS (14)
  1. COSENTYX [Interacting]
     Active Substance: SECUKINUMAB
     Indication: PSORIASIS
     Dosage: 150 MG, QW
     Route: 058
     Dates: start: 20180318
  2. COSENTYX [Interacting]
     Active Substance: SECUKINUMAB
     Indication: MULTIPLE SCLEROSIS
     Dosage: 150 MG, QW
     Route: 058
     Dates: start: 20180804
  3. BENADRYL [Concomitant]
     Active Substance: DIPHENHYDRAMINE HYDROCHLORIDE
     Indication: PRODUCT USED FOR UNKNOWN INDICATION
     Dosage: UNK
     Route: 065
  4. COSENTYX [Interacting]
     Active Substance: SECUKINUMAB
     Indication: NEURALGIA
     Dosage: 150 MG, QMO
     Route: 058
     Dates: start: 20180905, end: 20190205
  5. COSENTYX [Suspect]
     Active Substance: SECUKINUMAB
     Indication: ANKYLOSING SPONDYLITIS
     Dosage: 150 MG, QW
     Route: 058
     Dates: start: 20180226
  6. PANTOLOC [Concomitant]
     Active Substance: PANTOPRAZOLE SODIUM
     Indication: PRODUCT USED FOR UNKNOWN INDICATION
     Dosage: UNK
     Route: 065
  7. COSENTYX [Interacting]
     Active Substance: SECUKINUMAB
     Dosage: 150 MG, QMO
     Route: 058
     Dates: start: 20200409
  8. ELAVIL [Interacting]
     Active Substance: AMITRIPTYLINE HYDROCHLORIDE
     Indication: GENITAL PAIN
     Dosage: UNK
     Route: 065
  9. CORTISONE [Concomitant]
     Active Substance: CORTISONE
     Indication: URINARY TRACT INFECTION
     Dosage: 1 G, OTHER (DIE)X 7DAYS
     Route: 042
  10. NAPROXEN. [Concomitant]
     Active Substance: NAPROXEN
     Indication: PRODUCT USED FOR UNKNOWN INDICATION
     Dosage: UNK UNK, QID
     Route: 065
  11. GABAPENTIN. [Concomitant]
     Active Substance: GABAPENTIN
     Indication: NERVOUS SYSTEM DISORDER
     Dosage: 400 MG, QD (DIE)
     Route: 065
  12. GABAPENTIN. [Concomitant]
     Active Substance: GABAPENTIN
     Dosage: 1 DF, QID
     Route: 048
  13. PREDNISONE. [Concomitant]
     Active Substance: PREDNISONE
     Indication: PRODUCT USED FOR UNKNOWN INDICATION
     Dosage: UNK UNK, BID
     Route: 065
  14. CIPROFLOXACIN. [Suspect]
     Active Substance: CIPROFLOXACIN
     Indication: PROPHYLAXIS
     Dosage: 1 G, QD (DIE)
     Route: 048
     Dates: start: 201607

REACTIONS (31)
  - Tremor [Unknown]
  - Pain [Unknown]
  - Cough [Unknown]
  - Insomnia [Recovered/Resolved]
  - Gait disturbance [Unknown]
  - Burning sensation [Unknown]
  - Dyskinesia [Unknown]
  - Product use in unapproved indication [Unknown]
  - Stress [Unknown]
  - Night sweats [Recovered/Resolved]
  - Neck pain [Unknown]
  - Arthralgia [Unknown]
  - Dysuria [Unknown]
  - Sleep disorder [Unknown]
  - Hypoaesthesia [Unknown]
  - Musculoskeletal stiffness [Recovered/Resolved]
  - Multiple sclerosis relapse [Not Recovered/Not Resolved]
  - Fatigue [Unknown]
  - Rhinorrhoea [Unknown]
  - Psychomotor hyperactivity [Unknown]
  - Throat tightness [Recovered/Resolved]
  - Influenza [Unknown]
  - Pyrexia [Unknown]
  - Therapeutic response decreased [Unknown]
  - Paraesthesia [Unknown]
  - Palpitations [Recovered/Resolved]
  - Palpitations [Unknown]
  - Malaise [Unknown]
  - Electrocardiogram QT prolonged [Not Recovered/Not Resolved]
  - Syncope [Unknown]
  - Inappropriate schedule of product administration [Unknown]

NARRATIVE: CASE EVENT DATE: 201803
